FAERS Safety Report 5847709-0 (Version None)
Quarter: 2008Q3

REPORT INFORMATION
  Report Type: 
  Country: None (occurrence: None)
  Receive Date: 20080814
  Receipt Date: 20080804
  Transmission Date: 20090109
  Serious: Yes (Other)
  Sender: FDA-Public Use
  Company Number: 1-16488801/MED-08153

PATIENT
  Age: 90 Year
  Sex: Female

DRUGS (4)
  1. METRONIDAZOLE [Suspect]
     Indication: PNEUMONIA ASPIRATION
     Dosage: 500 MG THREE TIMES A DAY
  2. LEVODOPA [Concomitant]
  3. CALCIUM PREPARATIONS [Concomitant]
  4. CEFTRIZONE [Concomitant]

REACTIONS (2)
  - ELECTROCARDIOGRAM QT PROLONGED [None]
  - GENE MUTATION [None]
